FAERS Safety Report 9591030 (Version 1)
Quarter: 2013Q4

REPORT INFORMATION
  Report Type: Spontaneous
  Country: US (occurrence: US)
  Receive Date: 20131003
  Receipt Date: 20131003
  Transmission Date: 20140711
  Serious: No
  Sender: FDA-Public Use
  Company Number: US-AMGEN-USASP2012078967

PATIENT
  Sex: Female
  Weight: 63.49 kg

DRUGS (9)
  1. ENBREL [Suspect]
     Indication: PRODUCT USED FOR UNKNOWN INDICATION
     Dosage: 50 MG, QWK
     Dates: start: 201210
  2. PREDNISONE [Concomitant]
     Dosage: 1 MG, UNK
  3. FOLIC ACID [Concomitant]
     Dosage: UNK
  4. NEURONTIN [Concomitant]
     Dosage: 100 MG, UNK
  5. PLAQUENIL                          /00072603/ [Concomitant]
     Dosage: 200 MG, UNK
  6. SIMVASTATIN [Concomitant]
     Dosage: 10 MG, UNK
  7. MULTIVITAMIN                       /07504101/ [Concomitant]
     Dosage: UNK
  8. FLAXSEED OIL [Concomitant]
     Dosage: UNK
  9. CALCIUM [Concomitant]
     Dosage: 500 UNK, UNK

REACTIONS (1)
  - Pain in extremity [Unknown]
